FAERS Safety Report 11776453 (Version 1)
Quarter: 2015Q4

REPORT INFORMATION
  Report Type: Spontaneous
  Country: US (occurrence: US)
  Receive Date: 20151125
  Receipt Date: 20151125
  Transmission Date: 20160304
  Serious: No
  Sender: FDA-Public Use
  Company Number: US-ASTRAZENECA-2015SF07125

PATIENT
  Age: 75 Year
  Sex: Male

DRUGS (1)
  1. BYDUREON [Suspect]
     Active Substance: EXENATIDE
     Dosage: 2 MG 4 COUNT; 2 MG; ONCE A WEEK;
     Route: 058
     Dates: start: 201506

REACTIONS (3)
  - Injection site haemorrhage [Unknown]
  - Weight decreased [Unknown]
  - Underdose [Unknown]
